FAERS Safety Report 4284229-1 (Version None)
Quarter: 2004Q1

REPORT INFORMATION
  Report Type: 
  Country: None (occurrence: None)
  Receive Date: 20040130
  Receipt Date: 20040120
  Transmission Date: 20041129
  Serious: Yes (Life-Threatening, Hospitalization)
  Sender: FDA-Public Use
  Company Number: TR-JNJFOC-20040103967

PATIENT
  Age: 22 Year
  Sex: Female
  Weight: 45 kg

DRUGS (4)
  1. REMICADE [Suspect]
     Indication: RHEUMATOID ARTHRITIS
     Dosage: 200 MG, INTRAVENOUS
     Route: 042
  2. ARAVA [Concomitant]
  3. METHOTREXATE [Concomitant]
  4. QUENSYL (HYDROXYCHLOROQUINE SULFATE) [Concomitant]

REACTIONS (5)
  - CONDITION AGGRAVATED [None]
  - POLYARTHRITIS [None]
  - RHEUMATOID ARTHRITIS [None]
  - STAPHYLOCOCCAL ABSCESS [None]
  - SUBCUTANEOUS ABSCESS [None]
